FAERS Safety Report 17015332 (Version 1)
Quarter: 2019Q4

REPORT INFORMATION
  Report Type: Spontaneous
  Country: US (occurrence: US)
  Receive Date: 20191108
  Receipt Date: 20191108
  Transmission Date: 20200122
  Serious: No
  Sender: FDA-Public Use
  Company Number: None

PATIENT
  Age: 66 Year
  Sex: Female

DRUGS (1)
  1. XPOVIO [Suspect]
     Active Substance: SELINEXOR
     Indication: PLASMA CELL MYELOMA
     Dosage: ?          OTHER FREQUENCY:TWICE WEEKLY;?
     Route: 048
     Dates: start: 20190807, end: 20191108

REACTIONS (3)
  - Confusional state [None]
  - Full blood count decreased [None]
  - Fatigue [None]

NARRATIVE: CASE EVENT DATE: 20191108
